FAERS Safety Report 23379228 (Version 1)
Quarter: 2024Q1

REPORT INFORMATION
  Report Type: Spontaneous
  Country: PT (occurrence: PT)
  Receive Date: 20240108
  Receipt Date: 20240108
  Transmission Date: 20240410
  Serious: Yes (Hospitalization, Other)
  Sender: FDA-Public Use
  Company Number: PT-TEVA-VS-3140217

PATIENT
  Age: 78 Year

DRUGS (1)
  1. METHOTREXATE [Suspect]
     Active Substance: METHOTREXATE
     Indication: Eosinophilic granulomatosis with polyangiitis
     Route: 065

REACTIONS (4)
  - Drug-induced liver injury [Unknown]
  - Urinary tract infection [Unknown]
  - Cytomegalovirus infection [Recovering/Resolving]
  - Large intestine perforation [Recovering/Resolving]
